FAERS Safety Report 7531044-9 (Version None)
Quarter: 2011Q2

REPORT INFORMATION
  Report Type: 
  Country: None (occurrence: None)
  Receive Date: 20110608
  Receipt Date: 20110526
  Transmission Date: 20111010
  Serious: Yes (Death, Other)
  Sender: FDA-Public Use
  Company Number: US-BAYER-200940298NA

PATIENT
  Sex: Male

DRUGS (9)
  1. LISINOPRIL [Concomitant]
  2. TRASYLOL [Suspect]
     Indication: CORONARY ARTERY BYPASS
     Route: 042
     Dates: start: 20070121
  3. HYDROCHLOROTHIAZIDE [Concomitant]
     Dosage: 20/25 DAILY
  4. NEXIUM [Concomitant]
     Dosage: 40 MG, QD
  5. ASACOL [Concomitant]
     Dosage: 800 MG, TID
  6. TRASYLOL [Suspect]
     Indication: CORONARY ENDARTERECTOMY
  7. COLCHICINE [Concomitant]
     Indication: GOUT
     Dosage: 0.6 MG, PRN
  8. LIPITOR [Concomitant]
     Dosage: 20 MG, QD
  9. GLUCOPHAGE [Concomitant]
     Dosage: 500 MG, BID

REACTIONS (13)
  - RENAL FAILURE [None]
  - FEAR [None]
  - MULTI-ORGAN FAILURE [None]
  - RENAL INJURY [None]
  - UNEVALUABLE EVENT [None]
  - DEATH [None]
  - EMOTIONAL DISTRESS [None]
  - RENAL IMPAIRMENT [None]
  - ANXIETY [None]
  - STRESS [None]
  - PAIN [None]
  - ANHEDONIA [None]
  - INJURY [None]
